FAERS Safety Report 7880091-6 (Version None)
Quarter: 2011Q4

REPORT INFORMATION
  Report Type: 
  Country: None (occurrence: None)
  Receive Date: 20111101
  Receipt Date: 20111028
  Transmission Date: 20120403
  Serious: Yes (Other)
  Sender: FDA-Public Use
  Company Number: DE-BAYER-2011-102696

PATIENT
  Age: 41 Year
  Sex: Female
  Weight: 62 kg

DRUGS (2)
  1. MIRENA [Suspect]
     Indication: CONTRACEPTION
     Dosage: 20 MCG/24HR, CONT
     Route: 015
     Dates: start: 20090629
  2. MIRENA [Suspect]
     Indication: MENORRHAGIA

REACTIONS (4)
  - UTERINE LEIOMYOMA [None]
  - DEVICE DISLOCATION [None]
  - GENITAL HAEMORRHAGE [None]
  - DEVICE EXPULSION [None]
